FAERS Safety Report 7092115-7 (Version None)
Quarter: 2010Q4

REPORT INFORMATION
  Report Type: 
  Country: None (occurrence: None)
  Receive Date: 20101109
  Receipt Date: 20101029
  Transmission Date: 20110411
  Serious: Yes (Death, Life-Threatening, Hospitalization)
  Sender: FDA-Public Use
  Company Number: GB-JNJFOC-20101100543

PATIENT
  Sex: Female

DRUGS (9)
  1. REMICADE [Suspect]
     Indication: PSORIATIC ARTHROPATHY
     Dosage: FREQUENCY REPORTED AS 6-8 WEEKLY
     Route: 042
  2. TRAMADOL HCL [Concomitant]
  3. PARACETAMOL [Concomitant]
  4. AMITRIPTYLINE HCL [Concomitant]
  5. PAROXETINE HCL [Concomitant]
  6. ASPIRIN [Concomitant]
  7. PROCHLORPERAZINE [Concomitant]
  8. VERAPAMIL [Concomitant]
  9. ADCAL D3 [Concomitant]

REACTIONS (9)
  - ABDOMINAL SEPSIS [None]
  - AXONAL NEUROPATHY [None]
  - HEPATIC FAILURE [None]
  - HEPATIC STEATOSIS [None]
  - MALAISE [None]
  - NAUSEA [None]
  - PSORIATIC ARTHROPATHY [None]
  - URINARY TRACT INFECTION [None]
  - WEIGHT DECREASED [None]
